FAERS Safety Report 11866909 (Version 1)
Quarter: 2015Q4

REPORT INFORMATION
  Report Type: Spontaneous
  Country: RO (occurrence: RO)
  Receive Date: 20151224
  Receipt Date: 20151224
  Transmission Date: 20160305
  Serious: Yes (Hospitalization, Other)
  Sender: FDA-Public Use
  Company Number: RO-SUN PHARMACEUTICAL INDUSTRIES LTD-2015R1-106579

PATIENT
  Sex: Female

DRUGS (6)
  1. CYCLOPHOSPHAMIDE. [Suspect]
     Active Substance: CYCLOPHOSPHAMIDE
     Indication: PRODUCT USED FOR UNKNOWN INDICATION
     Dosage: 2 CYCLES OF 1600 MG/M2
     Route: 065
     Dates: start: 201401, end: 201408
  2. DOXORUBICIN [Suspect]
     Active Substance: DOXORUBICIN
     Indication: PRODUCT USED FOR UNKNOWN INDICATION
     Dosage: 2 CYCLES OF 70 MG/M2
     Route: 065
     Dates: start: 201401, end: 201408
  3. CYCLOPHOSPHAMIDE. [Suspect]
     Active Substance: CYCLOPHOSPHAMIDE
     Indication: PRODUCT USED FOR UNKNOWN INDICATION
     Dosage: 4 CYCLES OF 3.270 MG/M2
     Route: 065
     Dates: start: 201401, end: 201408
  4. DOCETAXEL. [Suspect]
     Active Substance: DOCETAXEL
     Indication: PRODUCT USED FOR UNKNOWN INDICATION
     Dosage: 2 CYCLES OF 167 MG/M2
     Route: 065
     Dates: start: 201401, end: 201408
  5. EPIRUBICIN [Suspect]
     Active Substance: EPIRUBICIN
     Indication: PRODUCT USED FOR UNKNOWN INDICATION
     Dosage: 4 CYCLES OF 488 MG/M2
     Route: 065
     Dates: start: 201401, end: 201408
  6. 5-FLUOROURACIL [Suspect]
     Active Substance: FLUOROURACIL
     Indication: PRODUCT USED FOR UNKNOWN INDICATION
     Dosage: 4 CYCLES OF 6970 MG/M2
     Route: 065
     Dates: start: 201401, end: 201408

REACTIONS (6)
  - Cardiomegaly [Recovering/Resolving]
  - Hepatic function abnormal [Recovered/Resolved]
  - Thrombocytopenia [Recovered/Resolved]
  - Cardiac failure [Recovering/Resolving]
  - Renal impairment [Recovered/Resolved]
  - Pleural effusion [Not Recovered/Not Resolved]
